FAERS Safety Report 10064360 (Version 1)
Quarter: 2014Q2

REPORT INFORMATION
  Report Type: Spontaneous
  Country: US (occurrence: None)
  Receive Date: 20140407
  Receipt Date: 20140407
  Transmission Date: 20141212
  Serious: Yes (Other)
  Sender: FDA-Public Use
  Company Number: None

PATIENT
  Age: 70 Year
  Sex: Male

DRUGS (1)
  1. OBINUTUZUMAB [Suspect]
     Route: 042

REACTIONS (5)
  - Pain [None]
  - Feeling hot [None]
  - Chest pain [None]
  - Retching [None]
  - Apparent death [None]
